FAERS Safety Report 19715483 (Version 1)
Quarter: 2021Q3

REPORT INFORMATION
  Report Type: Report from Study
  Country: None (occurrence: BR)
  Receive Date: 20210818
  Receipt Date: 20210818
  Transmission Date: 20211014
  Serious: Yes (Other)
  Sender: FDA-Public Use
  Company Number: BR-ABBVIE-21K-020-4039792-00

PATIENT
  Age: 68 Year
  Sex: Male
  Weight: 82 kg

DRUGS (3)
  1. HUMIRA [Suspect]
     Active Substance: ADALIMUMAB
     Indication: RHEUMATOID ARTHRITIS
     Route: 058
     Dates: start: 20130507, end: 2021
  2. METHOTREXATE. [Concomitant]
     Active Substance: METHOTREXATE
     Indication: ARTHRITIS
     Dosage: FIVE TABLETS EVERY EIGHT DAYS
     Route: 048
  3. DEXAMETHASONE. [Concomitant]
     Active Substance: DEXAMETHASONE
     Indication: ARTHRITIS
     Dosage: ONE TABLET AT NIGHT
     Route: 048
     Dates: start: 2018

REACTIONS (6)
  - Arthralgia [Not Recovered/Not Resolved]
  - Fatigue [Not Recovered/Not Resolved]
  - Arthritis infective [Not Recovered/Not Resolved]
  - Joint swelling [Not Recovered/Not Resolved]
  - Benign prostatic hyperplasia [Unknown]
  - Sepsis [Unknown]

NARRATIVE: CASE EVENT DATE: 202107
